FAERS Safety Report 10188794 (Version 1)
Quarter: 2014Q2

REPORT INFORMATION
  Report Type: Spontaneous
  Country: US (occurrence: US)
  Receive Date: 20140522
  Receipt Date: 20140522
  Transmission Date: 20141212
  Serious: No
  Sender: FDA-Public Use
  Company Number: US-SA-2014SA023457

PATIENT
  Sex: 0

DRUGS (1)
  1. LANTUS [Suspect]
     Indication: PRODUCT USED FOR UNKNOWN INDICATION
     Dosage: DOSE: 19-20 UNITS PER DAY
     Route: 058

REACTIONS (4)
  - Dermal absorption impaired [Unknown]
  - Injection site swelling [Unknown]
  - Injection site scar [Unknown]
  - Extra dose administered [Unknown]
